FAERS Safety Report 19774782 (Version 1)
Quarter: 2021Q3

REPORT INFORMATION
  Report Type: Spontaneous
  Country: DE (occurrence: DE)
  Receive Date: 20210901
  Receipt Date: 20210901
  Transmission Date: 20211014
  Serious: Yes (Other)
  Sender: FDA-Public Use
  Company Number: DE-MYLANLABS-2021M1057096

PATIENT
  Age: 49 Year
  Sex: Female

DRUGS (1)
  1. FINGOLIMOD. [Suspect]
     Active Substance: FINGOLIMOD
     Indication: RELAPSING-REMITTING MULTIPLE SCLEROSIS
     Dosage: UNK

REACTIONS (6)
  - Pyrexia [Unknown]
  - Meningitis cryptococcal [Recovering/Resolving]
  - Lymphopenia [Unknown]
  - Asthenia [Unknown]
  - Headache [Unknown]
  - Confusional state [Unknown]
